FAERS Safety Report 7064362-1 (Version None)
Quarter: 2010Q4

REPORT INFORMATION
  Report Type: 
  Country: None (occurrence: None)
  Receive Date: 20101027
  Receipt Date: 20101025
  Transmission Date: 20110411
  Serious: Yes (Death, Hospitalization, Other)
  Sender: FDA-Public Use
  Company Number: FR-BRISTOL-MYERS SQUIBB COMPANY-15049851

PATIENT
  Age: 49 Year
  Sex: Female
  Weight: 70 kg

DRUGS (7)
  1. CISPLATIN [Suspect]
     Indication: NON-SMALL CELL LUNG CANCER STAGE III
     Dosage: DOSAGE:50MG/M2,ON DAYS 1 AND 28.
     Route: 042
     Dates: start: 20091013, end: 20091110
  2. ETOPOSIDE [Suspect]
     Indication: NON-SMALL CELL LUNG CANCER STAGE III
     Dosage: DOSAGE:50MG/M2 ON DAYS 1 TO 5.
     Route: 042
     Dates: start: 20091013, end: 20091110
  3. PACLITAXEL [Suspect]
     Indication: NON-SMALL CELL LUNG CANCER STAGE III
     Dosage: DOSAGE:200MG/M2,ON DAY 1 AND 22 LAST DOSE:13JAN10.
     Route: 042
     Dates: start: 20091222
  4. CARBOPLATIN [Suspect]
     Indication: NON-SMALL CELL LUNG CANCER STAGE III
     Dosage: 1 DF:6 AUC ON DAYS 1 AND 22 LAST DOSE:13JAN10.
     Route: 042
     Dates: start: 20091222
  5. RADIATION THERAPY [Suspect]
     Indication: NON-SMALL CELL LUNG CANCER STAGE III
     Dosage: 1 DF:66 GY 6WEEKS 13OCT-27NOV09(46D), AND ALSO RECEIVED 33GY
     Dates: start: 20091013
  6. SOLU-MEDROL [Concomitant]
     Indication: INTRACRANIAL PRESSURE INCREASED
     Dates: start: 20100218
  7. MANNITOL [Concomitant]
     Indication: INTRACRANIAL PRESSURE INCREASED
     Dosage: 1 DF:20%.
     Dates: start: 20100216

REACTIONS (3)
  - MALIGNANT NEOPLASM PROGRESSION [None]
  - MULTI-ORGAN FAILURE [None]
  - SEPTIC SHOCK [None]
